FAERS Safety Report 24028854 (Version 2)
Quarter: 2024Q3

REPORT INFORMATION
  Report Type: Spontaneous
  Country: JP (occurrence: JP)
  Receive Date: 20240628
  Receipt Date: 20240701
  Transmission Date: 20241016
  Serious: Yes (Death)
  Sender: JOHNSON AND JOHNSON
  Company Number: JP-JNJFOC-20240675199

PATIENT
  Age: 63 Year
  Sex: Female

DRUGS (6)
  1. OPSUMIT [Suspect]
     Active Substance: MACITENTAN
     Indication: Pulmonary hypertension
     Dosage: DOSE UNKNOWN
     Route: 048
     Dates: start: 20190423, end: 20200613
  2. OPSUMIT [Suspect]
     Active Substance: MACITENTAN
     Route: 048
     Dates: start: 20200820
  3. ELIQUIS [Suspect]
     Active Substance: APIXABAN
     Indication: Product used for unknown indication
     Route: 048
  4. AMITIZA [Suspect]
     Active Substance: LUBIPROSTONE
     Indication: Product used for unknown indication
     Route: 048
  5. AMEZINIUM METILSULFATE [Suspect]
     Active Substance: AMEZINIUM METILSULFATE
     Indication: Product used for unknown indication
     Route: 048
  6. ADCIRCA [Suspect]
     Active Substance: TADALAFIL
     Indication: Product used for unknown indication
     Route: 048
     Dates: start: 20190423, end: 20200613

REACTIONS (1)
  - Pulmonary arterial hypertension [Fatal]
